FAERS Safety Report 25988673 (Version 3)
Quarter: 2025Q4

REPORT INFORMATION
  Report Type: Spontaneous
  Country: US (occurrence: US)
  Receive Date: 20251103
  Receipt Date: 20251119
  Transmission Date: 20260117
  Serious: Yes (Other)
  Sender: ROCHE
  Company Number: US-ROCHE-10000422343

PATIENT
  Age: 10 Year
  Sex: Male
  Weight: 34.3 kg

DRUGS (3)
  1. XOLAIR PFS [Suspect]
     Active Substance: OMALIZUMAB
     Indication: Food allergy
     Dosage: STRENGTH: 300MG/ 2ML
     Route: 058
  2. XOLAIR PFS [Suspect]
     Active Substance: OMALIZUMAB
     Dosage: STRENGTH: 150 MG/ML
     Route: 058
  3. XOLAIR PFS [Suspect]
     Active Substance: OMALIZUMAB
     Dosage: THE SECOND DOSE ON 15-SEP-2025, AND THE THIRD DOSE ON 20-OCT-2025.
     Route: 065
     Dates: start: 20250820

REACTIONS (2)
  - Anaphylactic reaction [Unknown]
  - Adverse drug reaction [Unknown]
